FAERS Safety Report 11107855 (Version 1)
Quarter: 2015Q2

REPORT INFORMATION
  Report Type: Spontaneous
  Country: DE (occurrence: DE)
  Receive Date: 20150512
  Receipt Date: 20150512
  Transmission Date: 20150821
  Serious: Yes (Other)
  Sender: FDA-Public Use
  Company Number: DE-TEVA-561051GER

PATIENT
  Sex: Male

DRUGS (3)
  1. FOLIO FORTE [Concomitant]
     Active Substance: FOLIC ACID\VITAMINS
     Indication: PROPHYLAXIS OF NEURAL TUBE DEFECT
     Dosage: .8 MILLIGRAM DAILY;
     Route: 064
     Dates: start: 20131107, end: 20140815
  2. IBUPROFEN. [Suspect]
     Active Substance: IBUPROFEN
     Indication: INTERVERTEBRAL DISC PROTRUSION
     Dosage: 800 TO 400 MG/D, UNKNOWN, HOW LONG IBUPROFEN WAS TAKEN AND IN WHICH EXACT DOSE.
     Route: 064
  3. NASIC [Concomitant]
     Active Substance: DEXPANTHENOL\XYLOMETAZOLINE HYDROCHLORIDE
     Indication: NASOPHARYNGITIS
     Route: 064
     Dates: start: 20131207, end: 20131218

REACTIONS (2)
  - Foetal exposure during pregnancy [Unknown]
  - Foetal heart rate deceleration abnormality [Recovered/Resolved]
